FAERS Safety Report 10562755 (Version 1)
Quarter: 2014Q4

REPORT INFORMATION
  Report Type: Spontaneous
  Country: US (occurrence: US)
  Receive Date: 20141104
  Receipt Date: 20141104
  Transmission Date: 20150529
  Serious: No
  Sender: FDA-Public Use
  Company Number: US-JNJFOC-20141017416

PATIENT
  Age: 74 Year
  Sex: Female
  Weight: 83.92 kg

DRUGS (2)
  1. TYLENOL [Concomitant]
     Active Substance: ACETAMINOPHEN
     Indication: PAIN
     Route: 048
  2. FENTANYL TRANSDERMAL SYSTEM [Suspect]
     Active Substance: FENTANYL
     Indication: BACK PAIN
     Route: 062
     Dates: start: 20141015

REACTIONS (5)
  - Wrong technique in drug usage process [Unknown]
  - Inadequate analgesia [Not Recovered/Not Resolved]
  - Wrong technique in drug usage process [Unknown]
  - Product quality issue [Unknown]
  - Pruritus [Recovered/Resolved]

NARRATIVE: CASE EVENT DATE: 201410
